FAERS Safety Report 8184950-9 (Version None)
Quarter: 2012Q1

REPORT INFORMATION
  Report Type: 
  Country: None (occurrence: None)
  Receive Date: 20120305
  Receipt Date: 20120228
  Transmission Date: 20120608
  Serious: Yes (Life-Threatening, Hospitalization)
  Sender: FDA-Public Use
  Company Number: ES-VIIV HEALTHCARE LIMITED-B0779300A

PATIENT
  Sex: Female
  Weight: 46.5 kg

DRUGS (5)
  1. ETRAVIRINE [Concomitant]
     Indication: HIV INFECTION
     Dosage: 800MG PER DAY
     Dates: start: 20090310
  2. RALTEGRAVIR [Concomitant]
     Indication: HIV INFECTION
     Dosage: 800MG PER DAY
     Dates: start: 20090310, end: 20120127
  3. METHADON HCL TAB [Suspect]
     Dosage: 50MG PER DAY
     Route: 048
     Dates: start: 19960521, end: 20111215
  4. FERRO GRADUMET [Concomitant]
     Indication: MINERAL SUPPLEMENTATION
     Route: 065
  5. MARAVIROC [Suspect]
     Indication: HIV INFECTION
     Dosage: 1200MG PER DAY
     Route: 048
     Dates: start: 20090310, end: 20120127

REACTIONS (2)
  - TORSADE DE POINTES [None]
  - DRUG INTERACTION [None]
